FAERS Safety Report 11346762 (Version 1)
Quarter: 2015Q3

REPORT INFORMATION
  Report Type: Spontaneous
  Country: US (occurrence: US)
  Receive Date: 20150803
  Receipt Date: 20150803
  Transmission Date: 20151125
  Serious: Yes (Hospitalization)
  Sender: FDA-Public Use
  Company Number: US-ELI_LILLY_AND_COMPANY-US201011003639

PATIENT
  Age: 32 Year
  Sex: Male
  Weight: 54.42 kg

DRUGS (7)
  1. COLACE [Concomitant]
     Active Substance: DOCUSATE SODIUM
     Dosage: 100 MG, DAILY (1/D)
     Route: 048
  2. ZYPREXA ZYDIS [Suspect]
     Active Substance: OLANZAPINE
     Dosage: 10 MG, UNK
     Dates: start: 2008
  3. MULTIVITAMIN AND MINERAL SUPPLEMENT [Concomitant]
     Active Substance: MINERALS\VITAMINS
  4. KLONOPIN [Concomitant]
     Active Substance: CLONAZEPAM
     Dosage: 0.5 D/F, 2/D
     Dates: start: 2006
  5. MIRALAX [Concomitant]
     Active Substance: POLYETHYLENE GLYCOL 3350
     Dosage: UNK, AS NEEDED
  6. ZYPREXA ZYDIS [Suspect]
     Active Substance: OLANZAPINE
     Dates: start: 20100831, end: 20100915
  7. ZYPREXA [Suspect]
     Active Substance: OLANZAPINE
     Indication: IMPULSIVE BEHAVIOUR
     Dosage: 5 MG, EACH EVENING
     Route: 048
     Dates: start: 20100915, end: 20100929

REACTIONS (2)
  - Off label use [Unknown]
  - Priapism [Recovered/Resolved with Sequelae]

NARRATIVE: CASE EVENT DATE: 20100918
